FAERS Safety Report 22150291 (Version 1)
Quarter: 2023Q1

REPORT INFORMATION
  Report Type: Spontaneous
  Country: IE (occurrence: IE)
  Receive Date: 20230329
  Receipt Date: 20230329
  Transmission Date: 20230418
  Serious: Yes (Other)
  Sender: FDA-Public Use
  Company Number: IE-ALKEM LABORATORIES LIMITED-IE-ALKEM-2023-02737

PATIENT
  Age: 55 Year
  Sex: Female

DRUGS (20)
  1. CLOZAPINE [Suspect]
     Active Substance: CLOZAPINE
     Indication: Bipolar disorder
     Dosage: 250 MILLIGRAM, QD (DAILY DOSE AT CANCER DIAGNOSIS)(TITRATED DOSE))
     Route: 065
  2. CLOZAPINE [Suspect]
     Active Substance: CLOZAPINE
     Indication: Depression
     Dosage: UNK (RE-INTRODUCTION)
     Route: 065
  3. CLOZAPINE [Suspect]
     Active Substance: CLOZAPINE
     Indication: Suicidal behaviour
  4. DULOXETINE HYDROCHLORIDE [Suspect]
     Active Substance: DULOXETINE HYDROCHLORIDE
     Indication: Antidepressant therapy
     Dosage: UNK
     Route: 065
  5. ESCITALOPRAM [Suspect]
     Active Substance: ESCITALOPRAM OXALATE
     Indication: Antidepressant therapy
     Dosage: UNK
     Route: 065
  6. OLANZAPINE [Suspect]
     Active Substance: OLANZAPINE
     Indication: Antipsychotic therapy
     Dosage: UNK
     Route: 065
  7. QUETIAPINE FUMARATE [Suspect]
     Active Substance: QUETIAPINE FUMARATE
     Indication: Antipsychotic therapy
     Dosage: UNK
     Route: 065
  8. VENLAFAXINE [Suspect]
     Active Substance: VENLAFAXINE HYDROCHLORIDE
     Indication: Antidepressant therapy
     Dosage: UNK
     Route: 065
  9. AMITRIPTYLINE [Suspect]
     Active Substance: AMITRIPTYLINE
     Indication: Antidepressant therapy
     Dosage: UNK
     Route: 065
  10. AGOMELATINE [Suspect]
     Active Substance: AGOMELATINE
     Indication: Antidepressant therapy
     Dosage: UNK
     Route: 065
  11. CISPLATIN [Suspect]
     Active Substance: CISPLATIN
     Indication: Vulval cancer stage I
     Dosage: UNK
     Route: 065
  12. FLUOXETINE [Suspect]
     Active Substance: FLUOXETINE HYDROCHLORIDE
     Indication: Antidepressant therapy
     Dosage: UNK
     Route: 065
  13. FLUVOXAMINE [Suspect]
     Active Substance: FLUVOXAMINE
     Indication: Antidepressant therapy
     Dosage: UNK
     Route: 065
  14. LITHIUM [Suspect]
     Active Substance: LITHIUM
     Indication: Affective disorder
     Dosage: UNK
     Route: 065
  15. MOCLOBEMIDE [Suspect]
     Active Substance: MOCLOBEMIDE
     Indication: Antidepressant therapy
     Dosage: UNK
     Route: 065
  16. MIRTAZAPINE [Suspect]
     Active Substance: MIRTAZAPINE
     Indication: Antidepressant therapy
     Dosage: UNK
     Route: 065
  17. PHENELZINE [Suspect]
     Active Substance: PHENELZINE
     Indication: Antidepressant therapy
     Dosage: UNK
     Route: 065
  18. SERTRALINE [Suspect]
     Active Substance: SERTRALINE HYDROCHLORIDE
     Indication: Antidepressant therapy
     Dosage: UNK
     Route: 065
  19. VALPROATE SODIUM [Suspect]
     Active Substance: VALPROATE SODIUM
     Indication: Affective disorder
     Dosage: UNK
     Route: 065
  20. TRIMIPRAMINE [Suspect]
     Active Substance: TRIMIPRAMINE
     Indication: Antidepressant therapy
     Dosage: UNK
     Route: 065

REACTIONS (4)
  - Neutropenia [Recovered/Resolved]
  - Leukopenia [Recovered/Resolved]
  - Therapy partial responder [Unknown]
  - Off label use [Unknown]
